FAERS Safety Report 7779210-1 (Version None)
Quarter: 2011Q3

REPORT INFORMATION
  Report Type: 
  Country: None (occurrence: None)
  Receive Date: 20110926
  Receipt Date: 20110922
  Transmission Date: 20111222
  Serious: Yes (Life-Threatening, Other)
  Sender: FDA-Public Use
  Company Number: ES-ASTRAZENECA-2011SE56972

PATIENT
  Age: 77 Year
  Sex: Male

DRUGS (4)
  1. COMTAN [Interacting]
     Route: 048
     Dates: start: 20110701, end: 20110707
  2. MADOPAR [Interacting]
     Route: 048
     Dates: start: 20110701, end: 20110707
  3. SEROQUEL XR [Suspect]
     Route: 048
     Dates: start: 20110701, end: 20110707
  4. CLONAZEPAM [Interacting]
     Route: 048
     Dates: start: 20110701, end: 20110707

REACTIONS (3)
  - DEPRESSED LEVEL OF CONSCIOUSNESS [None]
  - DRUG INTERACTION [None]
  - INCORRECT DRUG ADMINISTRATION RATE [None]
